FAERS Safety Report 6751691-1 (Version None)
Quarter: 2010Q2

REPORT INFORMATION
  Report Type: 
  Country: None (occurrence: None)
  Receive Date: 20100602
  Receipt Date: 20100525
  Transmission Date: 20101027
  Serious: Yes (Hospitalization)
  Sender: FDA-Public Use
  Company Number: B0605004A

PATIENT
  Sex: Male

DRUGS (14)
  1. DEROXAT [Suspect]
     Indication: DRUG USE FOR UNKNOWN INDICATION
     Dosage: 20MG PER DAY
     Route: 048
  2. LORAZEPAM [Suspect]
     Indication: DRUG USE FOR UNKNOWN INDICATION
     Dosage: 2.5MG PER DAY
     Route: 048
     Dates: end: 20090522
  3. NEXIUM [Suspect]
     Indication: DRUG USE FOR UNKNOWN INDICATION
     Dosage: 40MG PER DAY
     Route: 048
     Dates: end: 20090522
  4. LOXEN [Suspect]
     Indication: DRUG USE FOR UNKNOWN INDICATION
     Dosage: 50MG TWICE PER DAY
     Route: 048
  5. DEPAKENE [Suspect]
     Indication: DRUG USE FOR UNKNOWN INDICATION
     Dosage: 500MG TWICE PER DAY
     Route: 048
  6. IXPRIM [Suspect]
     Indication: DRUG USE FOR UNKNOWN INDICATION
     Dosage: 75MG TWICE PER DAY
     Route: 048
     Dates: end: 20090513
  7. VALIUM [Suspect]
     Indication: DRUG USE FOR UNKNOWN INDICATION
     Dosage: 10MG TWICE PER DAY
     Route: 048
     Dates: start: 20090512, end: 20090522
  8. DIPIPERON [Suspect]
     Indication: DRUG USE FOR UNKNOWN INDICATION
     Dosage: 6DROP PER DAY
     Route: 048
     Dates: start: 20090314, end: 20090522
  9. FURADANTINE [Suspect]
     Indication: DRUG USE FOR UNKNOWN INDICATION
     Dosage: 50MG SIX TIMES PER DAY
     Route: 048
     Dates: start: 20090516, end: 20090523
  10. AUGMENTIN '125' [Concomitant]
     Indication: DRUG USE FOR UNKNOWN INDICATION
     Dosage: 1UNIT THREE TIMES PER DAY
     Route: 042
     Dates: start: 20090522, end: 20090526
  11. KARDEGIC [Concomitant]
     Indication: DRUG USE FOR UNKNOWN INDICATION
     Dosage: 75MG PER DAY
     Route: 048
  12. VITAMINE B1 B6 [Concomitant]
     Indication: DRUG USE FOR UNKNOWN INDICATION
     Dosage: 3UNIT PER DAY
     Route: 048
  13. FORLAX [Concomitant]
     Indication: CONSTIPATION
     Dosage: 10G TWICE PER DAY
     Route: 048
  14. OFLOCET [Concomitant]
     Indication: DRUG USE FOR UNKNOWN INDICATION
     Dosage: 200MG TWICE PER DAY
     Route: 042
     Dates: start: 20090522, end: 20090526

REACTIONS (4)
  - DEPRESSED LEVEL OF CONSCIOUSNESS [None]
  - DISORIENTATION [None]
  - FALL [None]
  - SOMNOLENCE [None]
